FAERS Safety Report 22617992 (Version 1)
Quarter: 2023Q2

REPORT INFORMATION
  Report Type: Spontaneous
  Country: IL (occurrence: IL)
  Receive Date: 20230620
  Receipt Date: 20230620
  Transmission Date: 20230722
  Serious: No
  Sender: FDA-Public Use
  Company Number: IL-PFM-2022-07047

PATIENT
  Age: 6 Month
  Sex: Female
  Weight: 7.1 kg

DRUGS (1)
  1. PROPRANOLOL HYDROCHLORIDE [Suspect]
     Active Substance: PROPRANOLOL HYDROCHLORIDE
     Indication: Haemangioma
     Dosage: 3.5 MG/DAY (IN TWO WEEKS IT WILL BE INCREASED TO 7MG)
     Route: 048

REACTIONS (3)
  - Underdose [Unknown]
  - Drug ineffective [Unknown]
  - Off label use [Unknown]
